FAERS Safety Report 13601249 (Version 1)
Quarter: 2017Q2

REPORT INFORMATION
  Report Type: Spontaneous
  Country: MX (occurrence: MX)
  Receive Date: 20170601
  Receipt Date: 20170601
  Transmission Date: 20170830
  Serious: Yes (Death, Other)
  Sender: FDA-Public Use
  Company Number: MX-JNJFOC-20170524297

PATIENT
  Sex: Male

DRUGS (3)
  1. ZYTIGA [Suspect]
     Active Substance: ABIRATERONE ACETATE
     Indication: PROSTATE CANCER METASTATIC
     Route: 048
  2. PREDNISONE. [Suspect]
     Active Substance: PREDNISONE
     Indication: PROSTATE CANCER METASTATIC
     Route: 048
  3. LEUPRORELIN [Suspect]
     Active Substance: LEUPROLIDE ACETATE
     Indication: PROSTATE CANCER METASTATIC
     Route: 058

REACTIONS (15)
  - Prostate cancer metastatic [Unknown]
  - Nausea [Unknown]
  - Constipation [Unknown]
  - Alanine aminotransferase increased [Unknown]
  - Bone pain [Unknown]
  - Back pain [Unknown]
  - Aspartate aminotransferase increased [Unknown]
  - Hot flush [Unknown]
  - Arthralgia [Unknown]
  - Fluid retention [Unknown]
  - Diarrhoea [Unknown]
  - Cough [Unknown]
  - Respiratory failure [Fatal]
  - Fatigue [Unknown]
  - Blood alkaline phosphatase increased [Unknown]
